FAERS Safety Report 8544628-6 (Version None)
Quarter: 2012Q3

REPORT INFORMATION
  Report Type: 
  Country: None (occurrence: None)
  Receive Date: 20120727
  Receipt Date: 20120713
  Transmission Date: 20120928
  Serious: Yes (Hospitalization)
  Sender: FDA-Public Use
  Company Number: DE-ROCHE-1068673

PATIENT
  Sex: Male
  Weight: 99 kg

DRUGS (9)
  1. OXALIPLATIN [Suspect]
     Indication: COLORECTAL CANCER METASTATIC
     Dosage: LAST DOSE PRIOR TO SAE: 02/MAY/2012
     Route: 042
     Dates: start: 20120419
  2. FLUOROURACIL [Suspect]
     Dosage: 2640MG/48H DRIP
     Route: 042
  3. BISOPROLOL COMP [Concomitant]
     Dosage: 2.5/6.25MG
  4. AVASTIN [Suspect]
     Indication: COLORECTAL CANCER METASTATIC
     Dosage: LAST DOSE PRIOR TO SAE: 02/MAY/2012
     Route: 042
     Dates: start: 20120419
  5. RAMIPRIL [Concomitant]
  6. SIMVASTATIN [Concomitant]
  7. FLUOROURACIL [Suspect]
     Indication: COLORECTAL CANCER METASTATIC
     Dosage: BOLUS, LAST DOSE PRIOR TO SAE: 02/MAY/2012
     Route: 042
     Dates: start: 20120419
  8. LEUCOVORIN CALCIUM [Suspect]
     Indication: COLORECTAL CANCER METASTATIC
     Dosage: LAST DOSE PRIOR TO SAE: 02/MAY/2012
     Route: 042
     Dates: start: 20120419
  9. FELODIPINE [Concomitant]

REACTIONS (4)
  - ABSCESS [None]
  - SEPSIS [None]
  - ILEUS [None]
  - HERNIA OBSTRUCTIVE [None]
